FAERS Safety Report 4547268-9 (Version None)
Quarter: 2005Q1

REPORT INFORMATION
  Report Type: 
  Country: None (occurrence: None)
  Receive Date: 20050107
  Receipt Date: 20041230
  Transmission Date: 20050727
  Serious: Yes (Hospitalization, Disabling)
  Sender: FDA-Public Use
  Company Number: US-MERCK-0412USA03315

PATIENT
  Age: 83 Year
  Sex: Female
  Weight: 46 kg

DRUGS (2)
  1. VIOXX [Suspect]
     Indication: ARTHRITIS
     Route: 048
     Dates: start: 20030701
  2. ORIGINAL FORMULA SENSODYNE-SC [Suspect]
     Route: 065
     Dates: start: 19610101

REACTIONS (2)
  - CEREBROVASCULAR ACCIDENT [None]
  - FEELING ABNORMAL [None]
